FAERS Safety Report 5752505-9 (Version None)
Quarter: 2008Q2

REPORT INFORMATION
  Report Type: 
  Country: None (occurrence: None)
  Receive Date: 20080529
  Receipt Date: 20080415
  Transmission Date: 20081010
  Serious: No
  Sender: FDA-Public Use
  Company Number: US-BAYER-200810111BCC

PATIENT
  Age: 81 Year
  Sex: Male
  Weight: 109 kg

DRUGS (11)
  1. ALEVE [Suspect]
     Indication: ARTHRITIS
     Route: 048
     Dates: start: 20071201, end: 20080107
  2. ALEVE [Suspect]
     Route: 048
  3. FLOMAX [Concomitant]
  4. CALAN [Concomitant]
  5. XANAX [Concomitant]
  6. PRINIVIL [Concomitant]
  7. ARICEPT [Concomitant]
  8. HYDROCHLOROTHIAZIDE [Concomitant]
  9. INDERAL [Concomitant]
  10. MEVACOR [Concomitant]
  11. MICRONASE [Concomitant]

REACTIONS (3)
  - GASTRIC ULCER [None]
  - NAUSEA [None]
  - STOMACH DISCOMFORT [None]
